FAERS Safety Report 6227420-7 (Version None)
Quarter: 2009Q2

REPORT INFORMATION
  Report Type: 
  Country: None (occurrence: None)
  Receive Date: 20090612
  Receipt Date: 20090512
  Transmission Date: 20091009
  Serious: Yes (Other)
  Sender: FDA-Public Use
  Company Number: IT-CELGENEUS-083-21880-09050784

PATIENT
  Sex: Male

DRUGS (4)
  1. REVLIMID [Suspect]
     Indication: MULTIPLE MYELOMA
     Route: 048
     Dates: start: 20090415, end: 20090420
  2. REVLIMID [Suspect]
     Route: 048
     Dates: start: 20090508, end: 20090512
  3. ASPIRIN [Concomitant]
     Indication: THROMBOSIS PROPHYLAXIS
     Route: 048
  4. LMWH [Concomitant]
     Indication: THROMBOSIS PROPHYLAXIS
     Route: 051

REACTIONS (3)
  - CEREBELLAR SYNDROME [None]
  - MULTIPLE MYELOMA [None]
  - SPEECH DISORDER [None]
